FAERS Safety Report 5921552-6 (Version None)
Quarter: 2008Q3

REPORT INFORMATION
  Report Type: 
  Country: None (occurrence: None)
  Receive Date: 20080909
  Receipt Date: 20080212
  Transmission Date: 20090109
  Serious: Yes (Death, Other)
  Sender: FDA-Public Use
  Company Number: 163-20785-07110594

PATIENT
  Age: 13 Year
  Sex: Female

DRUGS (2)
  1. THALOMID [Suspect]
     Indication: ACUTE LYMPHOCYTIC LEUKAEMIA
     Dosage: 400 MG, QHS, ORAL
     Route: 048
     Dates: start: 20071001, end: 20071003
  2. THALOMID [Suspect]
     Indication: CHRONIC GRAFT VERSUS HOST DISEASE
     Dosage: 400 MG, QHS, ORAL
     Route: 048
     Dates: start: 20071001, end: 20071003

REACTIONS (5)
  - BACTERAEMIA [None]
  - FUNGAEMIA [None]
  - HUMAN HERPESVIRUS 6 INFECTION [None]
  - RESPIRATORY FAILURE [None]
  - SEPSIS [None]
